FAERS Safety Report 23424131 (Version 1)
Quarter: 2024Q1

REPORT INFORMATION
  Report Type: Spontaneous
  Country: PT (occurrence: PT)
  Receive Date: 20240120
  Receipt Date: 20240120
  Transmission Date: 20240410
  Serious: Yes (Disabling, Other)
  Sender: FDA-Public Use
  Company Number: PT-AUROBINDO-AUR-APL-2024-000246

PATIENT
  Age: 67 Year
  Sex: Male

DRUGS (2)
  1. DEFLAZACORT [Suspect]
     Active Substance: DEFLAZACORT
     Indication: Polymyalgia rheumatica
     Dosage: 30 MILLIGRAM, EVERY WEEK
     Route: 065
  2. DEFLAZACORT [Suspect]
     Active Substance: DEFLAZACORT
     Dosage: 15 MILLIGRAM
     Route: 065

REACTIONS (3)
  - Polymyalgia rheumatica [Unknown]
  - Rebound effect [Unknown]
  - Inappropriate schedule of product discontinuation [Unknown]
